FAERS Safety Report 22631722 (Version 1)
Quarter: 2023Q2

REPORT INFORMATION
  Report Type: Report from Study
  Country: US (occurrence: US)
  Receive Date: 20230623
  Receipt Date: 20230623
  Transmission Date: 20230721
  Serious: No
  Sender: FDA-Public Use
  Company Number: US-002147023-NVSC2023US141992

PATIENT
  Sex: Female

DRUGS (1)
  1. GLEEVEC [Suspect]
     Active Substance: IMATINIB MESYLATE
     Indication: Product used for unknown indication
     Dosage: UNK
     Route: 065
     Dates: start: 200111, end: 2006

REACTIONS (6)
  - Bone pain [Unknown]
  - Nausea [Unknown]
  - Weight increased [Unknown]
  - Fluid retention [Unknown]
  - Headache [Unknown]
  - Fatigue [Unknown]
